FAERS Safety Report 8334438-7 (Version None)
Quarter: 2012Q2

REPORT INFORMATION
  Report Type: 
  Country: None (occurrence: None)
  Receive Date: 20120503
  Receipt Date: 20120215
  Transmission Date: 20120825
  Serious: Yes (Other)
  Sender: FDA-Public Use
  Company Number: US-BAUSCH-2012BL001101

PATIENT
  Age: 67 Year
  Sex: Male

DRUGS (12)
  1. LOTEMAX [Suspect]
     Route: 047
     Dates: start: 20120127, end: 20120215
  2. LOTEMAX [Suspect]
     Indication: POSTOPERATIVE CARE
     Route: 047
     Dates: start: 20120122, end: 20120126
  3. BROMDAY [Concomitant]
     Route: 047
  4. LOTEMAX [Suspect]
     Route: 047
     Dates: start: 20120127, end: 20120215
  5. CETIRIZINE HCL [Concomitant]
  6. SIMVASTATIN [Concomitant]
  7. LOSARTAN POTASSIUM [Concomitant]
  8. LOTEMAX [Suspect]
     Indication: PREOPERATIVE CARE
     Route: 047
     Dates: start: 20120122, end: 20120126
  9. BESIVANCE [Concomitant]
     Route: 047
     Dates: end: 20120129
  10. CYMBALTA [Concomitant]
  11. DIAZEPAM [Concomitant]
  12. LANSOPRAZOLE [Concomitant]

REACTIONS (1)
  - INTRAOCULAR PRESSURE INCREASED [None]
